FAERS Safety Report 7453240-1 (Version None)
Quarter: 2011Q2

REPORT INFORMATION
  Report Type: 
  Country: None (occurrence: None)
  Receive Date: 20110502
  Receipt Date: 20101130
  Transmission Date: 20111010
  Serious: No
  Sender: FDA-Public Use
  Company Number: US-ASTRAZENECA-2010SE56930

PATIENT
  Age: 74 Year
  Sex: Female
  Weight: 63.5 kg

DRUGS (9)
  1. CARVEDILOL [Concomitant]
  2. SIMVASTATIN [Concomitant]
  3. ACIFEX [Concomitant]
  4. ALPRAZOLAM [Concomitant]
  5. BACTRIM [Concomitant]
     Indication: URINARY TRACT INFECTION
  6. LISINOPRIL [Concomitant]
  7. NEXIUM [Suspect]
     Indication: GASTROOESOPHAGEAL REFLUX DISEASE
     Route: 048
  8. AMOXICILLIN [Concomitant]
  9. LORTADINE [Concomitant]

REACTIONS (6)
  - BIOPSY LYMPH GLAND ABNORMAL [None]
  - COELIAC DISEASE [None]
  - ERYTHEMA [None]
  - SINUSITIS [None]
  - SINUS CONGESTION [None]
  - RASH PRURITIC [None]
